FAERS Safety Report 4531778-4 (Version None)
Quarter: 2005Q1

REPORT INFORMATION
  Report Type: 
  Country: None (occurrence: None)
  Receive Date: 20041220
  Receipt Date: 20041209
  Transmission Date: 20050727
  Serious: Yes (Hospitalization)
  Sender: FDA-Public Use
  Company Number: JP-JNJFOC-20041202814

PATIENT
  Age: 71 Year
  Sex: Female

DRUGS (7)
  1. ITRACONAZOLE [Suspect]
     Route: 049
     Dates: end: 20041118
  2. MICAFUNGIN SODIUM [Suspect]
     Route: 065
  3. CLARITHROMYCIN [Concomitant]
     Route: 049
  4. AZULENE SULFONATE SODIUM [Concomitant]
     Route: 049
  5. CARBOCISTEINE [Concomitant]
     Route: 049
  6. DEXTROMETHORPHAN HYDROBROMIDE [Concomitant]
     Route: 049
  7. CETIRIZINE HCL [Concomitant]
     Route: 049

REACTIONS (2)
  - DRUG INEFFECTIVE [None]
  - PNEUMONITIS [None]
